FAERS Safety Report 10533627 (Version 1)
Quarter: 2014Q4

REPORT INFORMATION
  Report Type: Spontaneous
  Country: US (occurrence: None)
  Receive Date: 20141021
  Receipt Date: 20141021
  Transmission Date: 20150529
  Serious: Yes (Other)
  Sender: FDA-Public Use
  Company Number: None

PATIENT
  Age: 64 Year
  Sex: Female
  Weight: 70.31 kg

DRUGS (3)
  1. VESICARE [Suspect]
     Active Substance: SOLIFENACIN SUCCINATE
     Indication: URINARY INCONTINENCE
     Dosage: 1-2 / DAY
     Route: 048
  2. VESICARE [Suspect]
     Active Substance: SOLIFENACIN SUCCINATE
     Indication: HYPERTONIC BLADDER
     Dosage: 1-2 / DAY
     Route: 048
  3. VESICARE [Suspect]
     Active Substance: SOLIFENACIN SUCCINATE
     Indication: POLLAKIURIA
     Dosage: 1-2 / DAY
     Route: 048

REACTIONS (11)
  - Sinus congestion [None]
  - Secretion discharge [None]
  - Depression [None]
  - Productive cough [None]
  - Activities of daily living impaired [None]
  - Nasopharyngitis [None]
  - Dyspepsia [None]
  - Decreased appetite [None]
  - Lethargy [None]
  - Vision blurred [None]
  - Fatigue [None]
